FAERS Safety Report 9750532 (Version 1)
Quarter: 2013Q4

REPORT INFORMATION
  Report Type: Report from Study
  Country: DE (occurrence: DE)
  Receive Date: 20131212
  Receipt Date: 20131212
  Transmission Date: 20140711
  Serious: Yes (Other)
  Sender: FDA-Public Use
  Company Number: DE-B.I. PHARMACEUTICALS,INC./RIDGEFIELD-2013-BI-41247DE

PATIENT
  Age: 87 Year
  Sex: Male

DRUGS (4)
  1. MICARDIS HCT [Suspect]
     Dosage: 7 ANZ
     Route: 048
     Dates: start: 20131206
  2. ALLOPURINOL [Suspect]
     Dosage: 3.5 ANZ
     Route: 048
     Dates: start: 20131206
  3. SIMVASTATIN [Suspect]
     Dosage: 7 ANZ
     Route: 048
     Dates: start: 20131206
  4. HCT [Suspect]
     Dosage: 7 ANZ
     Route: 048
     Dates: start: 20131206

REACTIONS (2)
  - Medication error [Unknown]
  - Overdose [Unknown]
